FAERS Safety Report 5092848-8 (Version None)
Quarter: 2006Q3

REPORT INFORMATION
  Report Type: 
  Country: None (occurrence: None)
  Receive Date: 20060828
  Receipt Date: 20060816
  Transmission Date: 20061208
  Serious: Yes (Hospitalization)
  Sender: FDA-Public Use
  Company Number: 2006-BP-09647RO

PATIENT
  Age: 32 Year
  Sex: Female

DRUGS (8)
  1. CYCLOPHOSPHAMIDE [Suspect]
     Indication: BREAST CANCER
     Dosage: (EVERY 21 DAYS)
  2. CYCLOPHOSPHAMIDE [Suspect]
     Indication: CHEMOTHERAPY
     Dosage: (EVERY 21 DAYS)
  3. DEXAMETHASONE TAB [Suspect]
     Indication: PREMEDICATION
  4. DOXORUBICIN HCL [Suspect]
     Indication: BREAST CANCER
     Dosage: (EVERY 21 DAYS),
  5. DOXORUBICIN HCL [Suspect]
     Indication: CHEMOTHERAPY
     Dosage: (EVERY 21 DAYS),
  6. NEULASTA [Suspect]
     Indication: INFECTION PROPHYLAXIS
     Dosage: (6 MG, REFER TO TEXT), SC
     Route: 058
  7. DOCETAXEL (DOCETAXEL) [Suspect]
     Indication: BREAST CANCER
     Dosage: (, EVERY 21 DAYS),
  8. DOCETAXEL (DOCETAXEL) [Suspect]
     Indication: CHEMOTHERAPY
     Dosage: (, EVERY 21 DAYS),

REACTIONS (2)
  - NEUTROPENIA [None]
  - PYREXIA [None]
